FAERS Safety Report 12649639 (Version 3)
Quarter: 2016Q4

REPORT INFORMATION
  Report Type: Spontaneous
  Country: AU (occurrence: AU)
  Receive Date: 20160812
  Receipt Date: 20161004
  Transmission Date: 20170207
  Serious: Yes (Life-Threatening, Hospitalization, Other)
  Sender: FDA-Public Use
  Company Number: PHHY2016AU108957

PATIENT
  Age: 90 Year
  Sex: Female

DRUGS (9)
  1. METOPROLOL. [Suspect]
     Active Substance: METOPROLOL
     Indication: ATRIAL FIBRILLATION
     Dosage: 25 MG, BID
     Route: 065
  2. METOPROLOL. [Suspect]
     Active Substance: METOPROLOL
     Dosage: 50 MG, TID
     Route: 065
  3. METOPROLOL. [Suspect]
     Active Substance: METOPROLOL
     Dosage: 50 MG MIDDAY
     Route: 065
  4. SALBUTAMOL [Concomitant]
     Active Substance: ALBUTEROL
     Indication: PRODUCT USED FOR UNKNOWN INDICATION
     Route: 065
  5. METOPROLOL. [Suspect]
     Active Substance: METOPROLOL
     Dosage: 100 MG AT NIGHT
     Route: 065
  6. METOPROLOL. [Suspect]
     Active Substance: METOPROLOL
     Dosage: 250 MG, QD (100 MG MORNING, 50 MG MIDDAY AND 100 MG AT NIGHT)
     Route: 065
  7. APIXABAN [Concomitant]
     Active Substance: APIXABAN
     Indication: PRODUCT USED FOR UNKNOWN INDICATION
     Dosage: 2.5 MG, UNK
     Route: 065
  8. POTASSIUM [Concomitant]
     Active Substance: POTASSIUM
     Route: 048
  9. POTASSIUM [Concomitant]
     Active Substance: POTASSIUM
     Indication: PRODUCT USED FOR UNKNOWN INDICATION
     Route: 048

REACTIONS (12)
  - Toxicity to various agents [Recovered/Resolved]
  - Ischaemic hepatitis [Recovered/Resolved]
  - Overdose [Recovered/Resolved]
  - Cardiogenic shock [Recovered/Resolved]
  - Acute kidney injury [Recovered/Resolved]
  - Tachycardia [Recovered/Resolved]
  - Cardiac failure [Recovered/Resolved]
  - Cyanosis [Recovered/Resolved]
  - Cyanosis central [Recovered/Resolved]
  - Multiple organ dysfunction syndrome [Unknown]
  - Hypotension [Recovered/Resolved]
  - Disseminated intravascular coagulation [Recovered/Resolved]
